FAERS Safety Report 11106188 (Version 1)
Quarter: 2015Q2

REPORT INFORMATION
  Report Type: Spontaneous
  Country: US (occurrence: None)
  Receive Date: 20150511
  Receipt Date: 20150511
  Transmission Date: 20150821
  Serious: No
  Sender: FDA-Public Use
  Company Number: None

PATIENT
  Age: 28 Year
  Sex: Female
  Weight: 90.2 kg

DRUGS (2)
  1. MAKENA [Suspect]
     Active Substance: HYDROXYPROGESTERONE CAPROATE
     Dosage: 250MCG EVERY TUESDAY
     Route: 030
     Dates: start: 20150505, end: 20150505
  2. MAKENA [Suspect]
     Active Substance: HYDROXYPROGESTERONE CAPROATE
     Indication: PREMATURE DELIVERY
     Dosage: 250MCG EVERY TUESDAY
     Route: 030
     Dates: start: 20150505, end: 20150505

REACTIONS (3)
  - Injection site rash [None]
  - Rash generalised [None]
  - Pruritus [None]

NARRATIVE: CASE EVENT DATE: 20150505
